FAERS Safety Report 24529625 (Version 2)
Quarter: 2024Q4

REPORT INFORMATION
  Report Type: Report from Study
  Country: CA (occurrence: CA)
  Receive Date: 20241021
  Receipt Date: 20241025
  Transmission Date: 20250114
  Serious: Yes (Hospitalization, Other)
  Sender: HLS THERAPEUTICS
  Company Number: CA-HLS-202402534

PATIENT
  Sex: Male

DRUGS (2)
  1. CLOZARIL [Suspect]
     Active Substance: CLOZAPINE
     Indication: Product used for unknown indication
     Route: 048
     Dates: start: 20190627
  2. CLOZARIL [Suspect]
     Active Substance: CLOZAPINE
     Indication: Product used for unknown indication
     Dosage: 175 AM AND 350 AT HS (AT BED TIME).
     Route: 065

REACTIONS (4)
  - Malaise [Unknown]
  - Treatment noncompliance [Unknown]
  - Psychiatric symptom [Unknown]
  - Generalised tonic-clonic seizure [Unknown]
